FAERS Safety Report 15997214 (Version 1)
Quarter: 2019Q1

REPORT INFORMATION
  Report Type: Spontaneous
  Country: DE (occurrence: DE)
  Receive Date: 20190222
  Receipt Date: 20190222
  Transmission Date: 20190418
  Serious: Yes (Life-Threatening, Hospitalization, Other)
  Sender: FDA-Public Use
  Company Number: PHHY2019DE040980

PATIENT
  Age: 70 Year
  Sex: Female
  Weight: 66.8 kg

DRUGS (10)
  1. NEOTAXAN [Suspect]
     Active Substance: PACLITAXEL
     Indication: CHEMOTHERAPY
     Dosage: 322 MG, UNK (UM 8.50 UHR PACLITAXEL INFUSION 175 MG/M2;205 ML/H (3H);STOPP: UM 9.02 UHR)
     Route: 042
  2. TAVEGIL [Concomitant]
     Active Substance: CLEMASTINE FUMARATE
     Indication: PREMEDICATION
     Dosage: 2 MG, UNK (UM 9:04 UHR I.V. 2 MG TAVEGIL)
     Route: 042
  3. NEOTAXAN [Suspect]
     Active Substance: PACLITAXEL
     Indication: UTERINE CANCER
  4. TAVEGIL [Concomitant]
     Active Substance: CLEMASTINE FUMARATE
     Dosage: 2 MG, UNK (UM 8:35 UHR 250 ML NACL MIT 10 MG RANITIC UND2 MG TAVEGIL)
     Route: 042
  5. CARBOPLATIN. [Concomitant]
     Active Substance: CARBOPLATIN
     Indication: UTERINE CANCER
     Dosage: 661 MG, UNK (90/60/30 ML/H)
     Route: 065
  6. CARBOPLATIN. [Concomitant]
     Active Substance: CARBOPLATIN
     Indication: CHEMOTHERAPY
  7. DEXAMETHASONE. [Concomitant]
     Active Substance: DEXAMETHASONE
     Indication: PREMEDICATION
     Dosage: 12 MG, UNK (UM 8:08 UHR 500 ML NACL MIT 12 MG DEXAMETHASON)
     Route: 042
  8. DEXAMETHASONE. [Concomitant]
     Active Substance: DEXAMETHASONE
     Dosage: 8 MG, UNK (UM 9:04 UHR I.V. 8 MG DEXAMETHASON)
     Route: 042
  9. RANITIC [Concomitant]
     Active Substance: RANITIDINE HYDROCHLORIDE
     Indication: PREMEDICATION
     Dosage: 10 MG, UNK (UM 8:35 UHR 250 ML NACL MIT 10 MG RANITIC UND2 MG TAVEGIL)
     Route: 042
  10. NACL [Concomitant]
     Active Substance: SODIUM CHLORIDE
     Indication: PRODUCT USED FOR UNKNOWN INDICATION
     Dosage: UNK
     Route: 065

REACTIONS (5)
  - Loss of consciousness [Recovered/Resolved]
  - Rib fracture [Recovered/Resolved]
  - Cardiac arrest [Recovered/Resolved]
  - Dyspnoea [Recovered/Resolved]
  - Anaphylactic shock [Recovered/Resolved]

NARRATIVE: CASE EVENT DATE: 20190102
